FAERS Safety Report 10262322 (Version 1)
Quarter: 2014Q2

REPORT INFORMATION
  Report Type: Spontaneous
  Country: BR (occurrence: BR)
  Receive Date: 20140626
  Receipt Date: 20140626
  Transmission Date: 20141212
  Serious: Yes (Other)
  Sender: FDA-Public Use
  Company Number: BR-BRISTOL-MYERS SQUIBB COMPANY-21042874

PATIENT
  Age: 35 Year
  Sex: Female
  Weight: 55 kg

DRUGS (2)
  1. COUMADIN [Suspect]
     Indication: CEREBROVASCULAR ACCIDENT PROPHYLAXIS
     Dosage: ALTERNATING WITH 2.5MG/DAY.
     Dates: start: 20140602
  2. SIMVASTATIN [Concomitant]

REACTIONS (3)
  - Dyspnoea [Unknown]
  - Abdominal discomfort [Unknown]
  - Nausea [Unknown]
